FAERS Safety Report 15766099 (Version 7)
Quarter: 2020Q1

REPORT INFORMATION
  Report Type: Spontaneous
  Country: US (occurrence: US)
  Receive Date: 20181227
  Receipt Date: 20200121
  Transmission Date: 20200409
  Serious: No
  Sender: FDA-Public Use
  Company Number: US-SA-2018SA393706

PATIENT
  Age: 28 Year
  Sex: Male

DRUGS (3)
  1. DUPIXENT [Suspect]
     Active Substance: DUPILUMAB
     Indication: DERMATITIS ATOPIC
     Dosage: 300 MG, QOW
     Route: 058
     Dates: start: 20180920
  2. DUPIXENT [Suspect]
     Active Substance: DUPILUMAB
     Indication: DERMATITIS ALLERGIC
  3. DUPIXENT [Suspect]
     Active Substance: DUPILUMAB
     Indication: ECZEMA

REACTIONS (8)
  - Pruritus [Unknown]
  - Therapeutic response decreased [Unknown]
  - Acne [Unknown]
  - Erythema [Unknown]
  - Skin discolouration [Recovering/Resolving]
  - Back disorder [Unknown]
  - Ocular hyperaemia [Unknown]
  - Product use issue [Unknown]

NARRATIVE: CASE EVENT DATE: 20190325
